FAERS Safety Report 15543000 (Version 1)
Quarter: 2018Q4

REPORT INFORMATION
  Report Type: Spontaneous
  Country: BR (occurrence: BR)
  Receive Date: 20181023
  Receipt Date: 20181023
  Transmission Date: 20190205
  Serious: Yes (Hospitalization, Other)
  Sender: FDA-Public Use
  Company Number: BR-ALLERGAN-1850012US

PATIENT
  Age: 64 Year

DRUGS (1)
  1. OZURDEX [Suspect]
     Active Substance: DEXAMETHASONE
     Indication: PRODUCT USED FOR UNKNOWN INDICATION
     Dosage: 0.7 MG, SINGLE
     Route: 031

REACTIONS (4)
  - Lung disorder [Unknown]
  - Endophthalmitis [Unknown]
  - Necrotising retinitis [Unknown]
  - Visual acuity reduced [Unknown]
